FAERS Safety Report 11611481 (Version 1)
Quarter: 2015Q4

REPORT INFORMATION
  Report Type: Spontaneous
  Country: US (occurrence: US)
  Receive Date: 20151008
  Receipt Date: 20151008
  Transmission Date: 20160304
  Serious: No
  Sender: FDA-Public Use
  Company Number: US-B.I. PHARMACEUTICALS,INC./RIDGEFIELD-2015-BI-52799BP

PATIENT

DRUGS (1)
  1. MIRAPEX [Suspect]
     Active Substance: PRAMIPEXOLE DIHYDROCHLORIDE
     Indication: PRODUCT USED FOR UNKNOWN INDICATION
     Route: 065
     Dates: start: 2008

REACTIONS (7)
  - Nausea [Unknown]
  - Panic attack [Unknown]
  - Obsessive-compulsive disorder [Unknown]
  - Adverse drug reaction [Unknown]
  - Disturbance in attention [Unknown]
  - Sudden onset of sleep [Unknown]
  - Emotional poverty [Unknown]
